FAERS Safety Report 15950760 (Version 3)
Quarter: 2019Q2

REPORT INFORMATION
  Report Type: Spontaneous
  Country: JP (occurrence: JP)
  Receive Date: 20190211
  Receipt Date: 20190611
  Transmission Date: 20190711
  Serious: Yes (Death, Other)
  Sender: FDA-Public Use
  Company Number: JP-PFIZER INC-2019055865

PATIENT
  Age: 78 Year
  Sex: Male
  Weight: 62 kg

DRUGS (17)
  1. FEBURIC [Concomitant]
     Active Substance: FEBUXOSTAT
     Dosage: UNK
  2. LIPITOR [Suspect]
     Active Substance: ATORVASTATIN CALCIUM
     Indication: HYPERCHOLESTEROLAEMIA
     Dosage: 10 MG, DAILY
  3. PREDONINE [Concomitant]
     Active Substance: PREDNISOLONE
     Dosage: UNK
  4. TANATRIL [Concomitant]
     Active Substance: IMIDAPRIL
     Dosage: UNK
  5. WARFARIN [Concomitant]
     Active Substance: WARFARIN
     Dosage: UNK
  6. FOLIAMIN [Concomitant]
     Active Substance: FOLIC ACID
     Dosage: UNK
  7. SAMSCA [Concomitant]
     Active Substance: TOLVAPTAN
     Dosage: UNK
  8. BROTIZOLAM [Concomitant]
     Active Substance: BROTIZOLAM
     Dosage: UNK
  9. REPATHA [Suspect]
     Active Substance: EVOLOCUMAB
     Indication: HYPERCHOLESTEROLAEMIA
     Dosage: 140 MG, UNK
     Route: 058
     Dates: start: 20180905
  10. CONIEL [Concomitant]
     Active Substance: BENIDIPINE HYDROCHLORIDE
     Dosage: UNK
  11. REPATHA [Suspect]
     Active Substance: EVOLOCUMAB
     Indication: LOW DENSITY LIPOPROTEIN INCREASED
  12. NEXIUM [Concomitant]
     Active Substance: ESOMEPRAZOLE MAGNESIUM
     Dosage: UNK
  13. PROMAC [Concomitant]
     Active Substance: NITROFURANTOIN
     Dosage: UNK
  14. HERBAL NOS [Concomitant]
     Active Substance: HERBALS
     Dosage: UNK
  15. DAIPHEN [Concomitant]
     Active Substance: SULFAMETHOXAZOLE\TRIMETHOPRIM
     Dosage: UNK
  16. FUROSEMIDE. [Concomitant]
     Active Substance: FUROSEMIDE
     Dosage: UNK
  17. HARNAL [Concomitant]
     Active Substance: TAMSULOSIN HYDROCHLORIDE
     Dosage: UNK

REACTIONS (4)
  - Pneumonia [Fatal]
  - Sepsis [Fatal]
  - Gastrointestinal perforation [Fatal]
  - Septic shock [Fatal]
